FAERS Safety Report 16637275 (Version 1)
Quarter: 2019Q3

REPORT INFORMATION
  Report Type: Spontaneous
  Country: US (occurrence: US)
  Receive Date: 20190726
  Receipt Date: 20190726
  Transmission Date: 20191004
  Serious: No
  Sender: FDA-Public Use
  Company Number: US-PERRIGO-19US002153

PATIENT
  Sex: Female

DRUGS (5)
  1. MULTIVITAMINS, COMBINATIONS [Concomitant]
     Active Substance: VITAMINS
     Indication: BLOOD IRON DECREASED
     Dosage: UNK
     Route: 065
     Dates: start: 20190131
  2. TYLENOL [Concomitant]
     Active Substance: ACETAMINOPHEN
     Indication: HEADACHE
     Dosage: PRN
     Route: 065
  3. MINOXIDIL. [Suspect]
     Active Substance: MINOXIDIL
     Indication: ALOPECIA
     Dosage: 1 ML, BID, 2 TO 3 DAYS PER WEEK
     Route: 061
     Dates: start: 201806
  4. VIVISCAL                           /02137601/ [Concomitant]
     Indication: ALOPECIA
     Dosage: UNK
     Route: 065
     Dates: start: 2016
  5. VITAMINS NOS [Concomitant]
     Active Substance: VITAMINS
     Indication: SUPPLEMENTATION THERAPY
     Dosage: UNK
     Route: 065

REACTIONS (2)
  - Off label use [Unknown]
  - Drug ineffective [Unknown]

NARRATIVE: CASE EVENT DATE: 201806
